FAERS Safety Report 4331756-4 (Version None)
Quarter: 2004Q2

REPORT INFORMATION
  Report Type: 
  Country: None (occurrence: None)
  Receive Date: 20040405
  Receipt Date: 20030602
  Transmission Date: 20050107
  Serious: No
  Sender: FDA-Public Use
  Company Number: US-GLAXOSMITHKLINE-A0411004A

PATIENT
  Age: 84 Year
  Sex: Male

DRUGS (6)
  1. FLOVENT [Suspect]
     Route: 055
  2. COMBIVENT [Concomitant]
  3. SINGULAIR [Concomitant]
  4. FLOMAX [Concomitant]
  5. LANOXIN [Concomitant]
  6. MULTIVITAMIN [Concomitant]

REACTIONS (1)
  - DYSGEUSIA [None]
